FAERS Safety Report 24035316 (Version 1)
Quarter: 2024Q2

REPORT INFORMATION
  Report Type: Spontaneous
  Country: US (occurrence: None)
  Receive Date: 20240629
  Receipt Date: 20240629
  Transmission Date: 20240716
  Serious: Yes (Disabling, Other)
  Sender: FDA-Public Use
  Company Number: None

PATIENT
  Age: 10 Month
  Sex: Female
  Weight: 8.55 kg

DRUGS (2)
  1. BOTOX [Suspect]
     Active Substance: BOTULINUM TOXIN TYPE A\ONABOTULINUMTOXINA
     Indication: Temporomandibular pain and dysfunction syndrome
     Dosage: OTHER QUANTITY : 40 UNITS;?
     Route: 030
     Dates: start: 20240531
  2. VITAMINS [Concomitant]
     Active Substance: VITAMINS

REACTIONS (3)
  - Exposure via breast milk [None]
  - Strabismus [None]
  - Hypermetropia [None]

NARRATIVE: CASE EVENT DATE: 20240605
